FAERS Safety Report 25376324 (Version 1)
Quarter: 2025Q2

REPORT INFORMATION
  Report Type: Spontaneous
  Country: CN (occurrence: CN)
  Receive Date: 20250529
  Receipt Date: 20250529
  Transmission Date: 20250716
  Serious: Yes (Other)
  Sender: BEIGENE
  Company Number: CN-BEIGENE-BGN-2025-008369

PATIENT
  Age: 55 Year

DRUGS (8)
  1. TISLELIZUMAB [Suspect]
     Active Substance: TISLELIZUMAB
     Indication: Cervix carcinoma
  2. TISLELIZUMAB [Suspect]
     Active Substance: TISLELIZUMAB
     Route: 041
  3. TISLELIZUMAB [Suspect]
     Active Substance: TISLELIZUMAB
     Route: 041
  4. TISLELIZUMAB [Suspect]
     Active Substance: TISLELIZUMAB
  5. CISPLATIN [Suspect]
     Active Substance: CISPLATIN
     Indication: Cervix carcinoma
  6. CISPLATIN [Suspect]
     Active Substance: CISPLATIN
     Route: 041
  7. CISPLATIN [Suspect]
     Active Substance: CISPLATIN
  8. CISPLATIN [Suspect]
     Active Substance: CISPLATIN
     Route: 041

REACTIONS (1)
  - Myelosuppression [Recovering/Resolving]
